FAERS Safety Report 7304276-2 (Version None)
Quarter: 2011Q1

REPORT INFORMATION
  Report Type: 
  Country: None (occurrence: None)
  Receive Date: 20110221
  Receipt Date: 20110216
  Transmission Date: 20110831
  Serious: Yes (Hospitalization, Other)
  Sender: FDA-Public Use
  Company Number: BR-ABBOTT-10P-020-0685241-00

PATIENT
  Sex: Male
  Weight: 57 kg

DRUGS (3)
  1. PREDNISONE [Concomitant]
     Indication: PRODUCT USED FOR UNKNOWN INDICATION
     Route: 048
     Dates: start: 19990101
  2. HUMIRA [Suspect]
     Indication: CROHN'S DISEASE
     Route: 058
     Dates: start: 20100401, end: 20100801
  3. HUMIRA [Suspect]
     Dates: start: 20100901

REACTIONS (7)
  - SCROTAL ABSCESS [None]
  - DEEP VEIN THROMBOSIS [None]
  - SCROTAL DISORDER [None]
  - ORCHITIS NONINFECTIVE [None]
  - MALAISE [None]
  - NECROTISING FASCIITIS [None]
  - ABASIA [None]
